FAERS Safety Report 6353404-4 (Version None)
Quarter: 2009Q3

REPORT INFORMATION
  Report Type: 
  Country: None (occurrence: None)
  Receive Date: 20090912
  Receipt Date: 20090622
  Transmission Date: 20100115
  Serious: No
  Sender: FDA-Public Use
  Company Number: US-ABBOTT-08P-163-0474080-00

PATIENT
  Sex: Female

DRUGS (17)
  1. HUMIRA [Suspect]
     Indication: CROHN'S DISEASE
     Route: 050
     Dates: start: 20080601
  2. RABEPRAZOLE SODIUM [Concomitant]
     Indication: GASTRIC DISORDER
     Route: 048
  3. LEVOTHYROXINE SODIUM [Concomitant]
     Indication: THYROID DISORDER
     Route: 048
  4. CALCIUM CARBONATE [Concomitant]
     Indication: MINERAL SUPPLEMENTATION
     Route: 048
  5. POTASSIUM CHLORIDE [Concomitant]
     Indication: MINERAL SUPPLEMENTATION
     Route: 048
  6. HYDROCHLOROTHIAZIDE [Concomitant]
     Indication: BLOOD PRESSURE
     Route: 048
  7. ATORVASTATIN CALCIUM [Concomitant]
     Indication: BLOOD CHOLESTEROL
     Route: 048
  8. MONTELUKAST [Concomitant]
     Indication: DYSPNOEA
     Route: 048
  9. ESZOPICLONE [Concomitant]
     Indication: INSOMNIA
     Route: 048
  10. ATENOLOL [Concomitant]
     Indication: BLOOD PRESSURE
     Route: 048
  11. OXYGEN [Concomitant]
     Indication: OXYGEN SUPPLEMENTATION
     Route: 055
     Dates: start: 20050101
  12. ROBICAL [Concomitant]
     Indication: MINERAL SUPPLEMENTATION
     Route: 048
  13. MULTI-VITAMIN [Concomitant]
     Indication: VITAMIN SUPPLEMENTATION
     Route: 048
  14. MIDRID [Concomitant]
     Indication: DRUG USE FOR UNKNOWN INDICATION
     Route: 048
  15. VICODIN [Concomitant]
     Indication: PAIN
     Route: 048
  16. FLEXERIL [Concomitant]
     Indication: PAIN
     Route: 048
  17. MERCAPTOPURINE [Concomitant]
     Indication: CROHN'S DISEASE
     Route: 048

REACTIONS (4)
  - BLOOD CREATININE INCREASED [None]
  - BLOOD UREA INCREASED [None]
  - INCORRECT DOSE ADMINISTERED [None]
  - INJECTION SITE EXTRAVASATION [None]
